FAERS Safety Report 8769054 (Version 1)
Quarter: 2012Q4

REPORT INFORMATION
  Report Type: 
  Country: DE (occurrence: DE)
  Receive Date: 20120905
  Receipt Date: 20120905
  Transmission Date: 20130627
  Serious: Yes (Other)
  Sender: FDA-Public Use
  Company Number: DE-JNJFOC-20120901477

PATIENT
  Age: 74 Year
  Sex: Male
  Weight: 101 kg

DRUGS (2)
  1. XARELTO [Suspect]
     Indication: CEREBROVASCULAR ACCIDENT PROPHYLAXIS
     Route: 048
     Dates: start: 20120316, end: 20120612
  2. XARELTO [Suspect]
     Indication: ATRIAL FIBRILLATION
     Route: 048
     Dates: start: 20120316, end: 20120612

REACTIONS (2)
  - Gout [Not Recovered/Not Resolved]
  - Gouty tophus [Not Recovered/Not Resolved]
